FAERS Safety Report 12269813 (Version 1)
Quarter: 2016Q2

REPORT INFORMATION
  Report Type: Spontaneous
  Country: CN (occurrence: CN)
  Receive Date: 20160415
  Receipt Date: 20160415
  Transmission Date: 20160815
  Serious: Yes (Other)
  Sender: FDA-Public Use
  Company Number: CN-ROCHE-1740183

PATIENT
  Age: 52 Year
  Sex: Female
  Weight: 57 kg

DRUGS (3)
  1. XELODA [Suspect]
     Active Substance: CAPECITABINE
     Indication: METASTASES TO LYMPH NODES
     Route: 048
     Dates: start: 20150924, end: 20151008
  2. GAI NUO [Suspect]
     Active Substance: VINORELBINE TARTRATE
     Indication: METASTASES TO LYMPH NODES
     Route: 041
     Dates: start: 20150924, end: 20151002
  3. HERCEPTIN [Suspect]
     Active Substance: TRASTUZUMAB
     Indication: METASTASES TO LYMPH NODES
     Route: 041
     Dates: start: 20150924, end: 20150924

REACTIONS (1)
  - Bone marrow failure [Recovering/Resolving]

NARRATIVE: CASE EVENT DATE: 20151014
